FAERS Safety Report 14525098 (Version 3)
Quarter: 2018Q1

REPORT INFORMATION
  Report Type: Report from Study
  Country: IL (occurrence: IL)
  Receive Date: 20180213
  Receipt Date: 20180319
  Transmission Date: 20180509
  Serious: Yes (Other)
  Sender: FDA-Public Use
  Company Number: PHHY2017IL063204

PATIENT
  Age: 66 Year
  Sex: Female

DRUGS (2)
  1. AFINITOR [Suspect]
     Active Substance: EVEROLIMUS
     Dosage: 10 MG, QD
     Route: 048
     Dates: end: 20180311
  2. AFINITOR [Suspect]
     Active Substance: EVEROLIMUS
     Indication: BREAST CANCER
     Dosage: 10 MG, QD
     Route: 048
     Dates: start: 20170208

REACTIONS (10)
  - Blood potassium abnormal [Unknown]
  - Malignant neoplasm progression [Unknown]
  - Haemoglobin decreased [Unknown]
  - Tumour marker increased [Unknown]
  - Oral pain [Recovered/Resolved]
  - Stomatitis [Recovered/Resolved]
  - Breast cancer [Unknown]
  - Epistaxis [Not Recovered/Not Resolved]
  - Influenza [Unknown]
  - Renal impairment [Unknown]

NARRATIVE: CASE EVENT DATE: 20180204
